FAERS Safety Report 17397100 (Version 1)
Quarter: 2020Q1

REPORT INFORMATION
  Report Type: Spontaneous
  Country: US (occurrence: US)
  Receive Date: 20200210
  Receipt Date: 20200210
  Transmission Date: 20200409
  Serious: Yes (Hospitalization)
  Sender: FDA-Public Use
  Company Number: US-009507513-2002USA000906

PATIENT
  Sex: Male

DRUGS (1)
  1. INTRON A [Suspect]
     Active Substance: INTERFERON ALFA-2B
     Indication: CUTANEOUS T-CELL LYMPHOMA STAGE IV
     Dosage: 1.5 MILLION UNIT THREE NIGHTS PER WEEK (STRENGTH: 6 MMU/ML)
     Route: 058
     Dates: start: 20190306

REACTIONS (1)
  - Adverse event [Unknown]
